FAERS Safety Report 13635228 (Version 2)
Quarter: 2017Q3

REPORT INFORMATION
  Report Type: Spontaneous
  Country: US (occurrence: US)
  Receive Date: 20170609
  Receipt Date: 20170726
  Transmission Date: 20171127
  Serious: No
  Sender: FDA-Public Use
  Company Number: US-PFIZER INC-2017245903

PATIENT
  Age: 18 Year
  Sex: Female

DRUGS (1)
  1. EUCRISA [Suspect]
     Active Substance: CRISABOROLE
     Indication: DERMATITIS ATOPIC
     Dosage: UNK, 2X/DAY (1 APPLICATION)
     Route: 061
     Dates: start: 201705, end: 201705

REACTIONS (2)
  - Erythema [Unknown]
  - Burning sensation [Unknown]
